FAERS Safety Report 6411088-0 (Version None)
Quarter: 2009Q4

REPORT INFORMATION
  Report Type: 
  Country: None (occurrence: None)
  Receive Date: 20091020
  Receipt Date: 20091007
  Transmission Date: 20100525
  Serious: Yes (Other)
  Sender: FDA-Public Use
  Company Number: 1-20340875

PATIENT

DRUGS (2)
  1. PREDNISOLONE [Suspect]
  2. CELLCEPT [Suspect]
     Indication: POLYMYOSITIS

REACTIONS (1)
  - ALANINE AMINOTRANSFERASE INCREASED [None]
